FAERS Safety Report 6533771-9 (Version None)
Quarter: 2010Q1

REPORT INFORMATION
  Report Type: 
  Country: None (occurrence: None)
  Receive Date: 20100111
  Receipt Date: 20090415
  Transmission Date: 20100710
  Serious: No
  Sender: FDA-Public Use
  Company Number: US-ABBOTT-09P-163-0568436-00

PATIENT
  Age: 43 Year
  Sex: Male
  Weight: 122.58 kg

DRUGS (14)
  1. VICODIN [Suspect]
     Indication: SPINAL COLUMN STENOSIS
     Route: 048
     Dates: start: 19990101
  2. TYLENOL (CAPLET) [Suspect]
     Indication: OSTEOARTHRITIS
     Route: 048
     Dates: start: 20081201, end: 20090313
  3. TRICOR [Concomitant]
     Indication: DRUG USE FOR UNKNOWN INDICATION
     Route: 048
     Dates: start: 20040101
  4. METFORMIN HYDROCHLORIDE [Concomitant]
     Indication: DIABETES MELLITUS
     Route: 048
     Dates: start: 20010101
  5. ACTOS [Concomitant]
     Indication: DIABETES MELLITUS
     Route: 048
     Dates: start: 20010101
  6. VESICARE [Concomitant]
     Indication: INCONTINENCE
     Route: 048
  7. COUMADIN [Concomitant]
     Indication: ANTICOAGULANT THERAPY
     Route: 048
     Dates: start: 20030101
  8. COUMADIN [Concomitant]
     Dates: start: 20030101
  9. OMEPRAZOLE [Concomitant]
     Indication: GASTROOESOPHAGEAL REFLUX DISEASE
     Route: 048
     Dates: start: 19990101
  10. FLEXERIL [Concomitant]
     Indication: MUSCLE SPASMS
     Route: 048
     Dates: start: 19980101
  11. PROVENTIL [Concomitant]
     Indication: ASTHMA
  12. SYMBICORT [Concomitant]
     Indication: DRUG USE FOR UNKNOWN INDICATION
  13. LANTUS [Concomitant]
     Indication: DRUG USE FOR UNKNOWN INDICATION
  14. HUMULIN R [Concomitant]
     Indication: DRUG USE FOR UNKNOWN INDICATION

REACTIONS (6)
  - DRUG ADMINISTRATION ERROR [None]
  - ERYTHEMA [None]
  - INAPPROPRIATE SCHEDULE OF DRUG ADMINISTRATION [None]
  - INTENTIONAL OVERDOSE [None]
  - OEDEMA [None]
  - URTICARIA [None]
